FAERS Safety Report 21099357 (Version 1)
Quarter: 2022Q3

REPORT INFORMATION
  Report Type: Spontaneous
  Country: US (occurrence: US)
  Receive Date: 20220719
  Receipt Date: 20220719
  Transmission Date: 20221027
  Serious: No
  Sender: FDA-Public Use
  Company Number: US-MYLANLABS-2022M1078326

PATIENT
  Sex: Female
  Weight: 68.04 kg

DRUGS (2)
  1. DAPTOMYCIN [Suspect]
     Active Substance: DAPTOMYCIN
     Indication: Lyme disease
     Dosage: 500 MILLIGRAM
     Route: 042
  2. ROCEPHIN [Concomitant]
     Active Substance: CEFTRIAXONE SODIUM
     Indication: Lyme disease
     Dosage: UNK
     Route: 065

REACTIONS (3)
  - Product contamination physical [Unknown]
  - Pruritus [Unknown]
  - Feeling hot [Unknown]
